FAERS Safety Report 4373105-1 (Version None)
Quarter: 2004Q2

REPORT INFORMATION
  Report Type: 
  Country: None (occurrence: None)
  Receive Date: 20040603
  Receipt Date: 20040524
  Transmission Date: 20050107
  Serious: Yes (Death)
  Sender: FDA-Public Use
  Company Number: 2004S1000024

PATIENT
  Age: 1 Day
  Sex: Female
  Weight: 0.53 kg

DRUGS (1)
  1. INOMAX [Suspect]
     Indication: NEONATAL RESPIRATORY DISTRESS SYNDROME
     Dosage: 20 PPM; CONT; INH
     Route: 055
     Dates: start: 20040523, end: 20040524

REACTIONS (3)
  - BACTERIAL SEPSIS [None]
  - MEDICATION ERROR [None]
  - SEPSIS NEONATAL [None]
